FAERS Safety Report 9100223 (Version 2)
Quarter: 2013Q1

REPORT INFORMATION
  Report Type: Report from Study
  Country: US (occurrence: US)
  Receive Date: 20130212
  Receipt Date: 20130219
  Transmission Date: 20140127
  Serious: Yes (Other)
  Sender: FDA-Public Use
  Company Number: US-VERTEX PHARMACEUTICALS INC.-2013-001813

PATIENT
  Age: 30 Year
  Sex: Female
  Weight: 76 kg

DRUGS (11)
  1. VX-950 (TELAPREVIR) [Suspect]
     Indication: HEPATITIS C
     Dosage: 750 MG, TID
     Route: 048
     Dates: end: 20130203
  2. PEGASYS [Suspect]
     Indication: HEPATITIS C
     Dosage: 180 ?G, UNK
     Route: 058
  3. RIBAVIRIN [Suspect]
     Indication: HEPATITIS C
     Dosage: 200 MG, UNK
  4. GABAPENTIN [Concomitant]
     Dosage: 300 MG, UNK
     Route: 048
  5. VALTREX [Concomitant]
     Dosage: 500 MG, UNK
     Route: 048
  6. IBUPROFEN [Concomitant]
     Dosage: 200 MG, UNK
     Route: 048
  7. CELEXA [Concomitant]
     Dosage: 10 MG, UNK
     Route: 048
  8. HYDROXYZINE HCL [Concomitant]
     Dosage: 10 MG, UNK
     Route: 048
  9. BENZONATATE [Concomitant]
     Dosage: 100 MG, UNK
     Route: 048
  10. ALBUTEROL AER [Concomitant]
     Dosage: 90 ?G, UNK
  11. PROAIR HFA AER [Concomitant]

REACTIONS (7)
  - Dyspnoea [Unknown]
  - Chest pain [Unknown]
  - Fatigue [Unknown]
  - Rash generalised [Recovered/Resolved]
  - Anorectal discomfort [Unknown]
  - Haematochezia [Recovered/Resolved]
  - Diarrhoea [Recovered/Resolved]
